FAERS Safety Report 8953848 (Version 1)
Quarter: 2012Q4

REPORT INFORMATION
  Report Type: 
  Country: DE (occurrence: DE)
  Receive Date: 20121206
  Receipt Date: 20121206
  Transmission Date: 20130627
  Serious: Yes (Hospitalization, Disabling, Congenital Anomaly, Other)
  Sender: FDA-Public Use
  Company Number: DE-MYLANLABS-2012S1024356

PATIENT
  Age: 0 Year
  Sex: Male
  Weight: 3.38 kg

DRUGS (3)
  1. LAMOTRIGINE [Suspect]
     Dosage: 200 [mg/d ]
     Route: 064
  2. HUMALOG [Concomitant]
     Route: 064
     Dates: start: 20120515, end: 20120624
  3. FOLSAN [Concomitant]
     Indication: PROPHYLAXIS OF NEURAL TUBE DEFECT
     Route: 064

REACTIONS (8)
  - Bradycardia neonatal [Unknown]
  - Congenital central nervous system anomaly [Not Recovered/Not Resolved]
  - Convulsion neonatal [Not Recovered/Not Resolved]
  - Atrial septal defect [Unknown]
  - Cerebral atrophy [Not Recovered/Not Resolved]
  - Laryngomalacia [Not Recovered/Not Resolved]
  - Retrognathia [Not Recovered/Not Resolved]
  - Exposure during pregnancy [Recovered/Resolved]
